FAERS Safety Report 18334021 (Version 2)
Quarter: 2022Q2

REPORT INFORMATION
  Report Type: Spontaneous
  Country: AU (occurrence: AU)
  Receive Date: 20201001
  Receipt Date: 20220628
  Transmission Date: 20220720
  Serious: Yes (Hospitalization)
  Sender: FDA-Public Use
  Company Number: AU-GSKCCFAPAC-CASE-01042794_AE-34644

PATIENT

DRUGS (1)
  1. BENZOYL PEROXIDE\CLINDAMYCIN PHOSPHATE [Suspect]
     Active Substance: BENZOYL PEROXIDE\CLINDAMYCIN PHOSPHATE
     Indication: Product used for unknown indication
     Dosage: UNK

REACTIONS (2)
  - Hypersensitivity [Unknown]
  - Burning sensation [Unknown]

NARRATIVE: CASE EVENT DATE: 20200923
